FAERS Safety Report 24741676 (Version 1)
Quarter: 2024Q4

REPORT INFORMATION
  Report Type: Report from Study
  Country: CN (occurrence: CN)
  Receive Date: 20241217
  Receipt Date: 20241217
  Transmission Date: 20250115
  Serious: Yes (Hospitalization)
  Sender: ROCHE
  Company Number: CN-ROCHE-10000150127

PATIENT

DRUGS (4)
  1. RITUXIMAB [Suspect]
     Active Substance: RITUXIMAB
     Indication: Acquired haemophilia
     Dosage: MAINTENANCE DOSE WAS 100 -200 MG/TIME?AFTER CR, ONCE EVERY 2 -3 MONTHS FOR 1. 5-2 YEARS.
     Route: 042
  2. BORTEZOMIB [Suspect]
     Active Substance: BORTEZOMIB
     Indication: Acquired haemophilia
     Route: 065
  3. PREDNISONE ACETATE [Suspect]
     Active Substance: PREDNISONE ACETATE
     Indication: Acquired haemophilia
     Dosage: FOR 4 - 6 WEEKS
     Route: 065
  4. CYCLOPHOSPHAMIDE [Suspect]
     Active Substance: CYCLOPHOSPHAMIDE
     Indication: Acquired haemophilia
     Dosage: 1 - 2 MG/(KG/D) FOR 4 - 6 WEEKS
     Route: 065

REACTIONS (6)
  - Neutrophil count decreased [Recovered/Resolved]
  - Pneumonia [Recovered/Resolved]
  - Off label use [Unknown]
  - Pneumonia bacterial [Recovered/Resolved]
  - Urinary tract infection [Recovered/Resolved]
  - Pneumonia fungal [Recovered/Resolved]
